FAERS Safety Report 7329588-8 (Version None)
Quarter: 2011Q1

REPORT INFORMATION
  Report Type: 
  Country: None (occurrence: None)
  Receive Date: 20110303
  Receipt Date: 20110223
  Transmission Date: 20110831
  Serious: Yes (Other)
  Sender: FDA-Public Use
  Company Number: US-AMGEN-US351098

PATIENT
  Sex: Female
  Weight: 127.1 kg

DRUGS (12)
  1. NPLATE [Suspect]
     Indication: IDIOPATHIC THROMBOCYTOPENIC PURPURA
     Dosage: UNK UNK, QWK
     Route: 058
     Dates: start: 20081023
  2. LEVETIRACETAM [Concomitant]
     Dosage: UNK UNK, UNK
     Route: 065
  3. ATENOLOL [Concomitant]
     Dosage: UNK UNK, UNK
     Route: 065
  4. AMINOCAPROIC ACID [Concomitant]
     Dosage: UNK UNK, UNK
     Route: 065
  5. AMLODIPINE BESILATE [Concomitant]
     Dosage: UNK UNK, UNK
     Route: 065
  6. NPLATE [Suspect]
     Dosage: 9.5 A?G/KG, UNK
     Dates: end: 20090122
  7. THEOPHYLLINE [Concomitant]
     Dosage: UNK UNK, UNK
     Route: 065
  8. EZETIMIBE [Concomitant]
     Dosage: UNK UNK, UNK
     Route: 065
  9. IRON [Concomitant]
     Dosage: UNK UNK, UNK
     Route: 065
  10. NPLATE [Suspect]
     Dosage: 2 A?G/KG, UNK
     Dates: end: 20100923
  11. POTASSIUM CHLORIDE [Concomitant]
     Dosage: UNK UNK, UNK
     Route: 065
  12. VINCRISTINE SULFATE [Concomitant]
     Dosage: UNK UNK, UNK
     Route: 065
     Dates: start: 20090112, end: 20090202

REACTIONS (2)
  - ARTHROPATHY [None]
  - DRUG INEFFECTIVE [None]
